FAERS Safety Report 9540017 (Version 2)
Quarter: 2013Q4

REPORT INFORMATION
  Report Type: Spontaneous
  Country: AR (occurrence: AR)
  Receive Date: 20130920
  Receipt Date: 20131011
  Transmission Date: 20140711
  Serious: Yes (Life-Threatening, Hospitalization)
  Sender: FDA-Public Use
  Company Number: AR-ROCHE-1275140

PATIENT
  Age: 28 Year
  Sex: Female

DRUGS (7)
  1. ACTEMRA [Suspect]
     Indication: STILL^S DISEASE ADULT ONSET
     Dosage: 400 MG : MONTHLY DOSE
     Route: 042
     Dates: start: 20121116, end: 20130801
  2. METHYLPREDNISOLONE [Concomitant]
  3. MEPREDNISONE [Concomitant]
     Indication: STILL^S DISEASE ADULT ONSET
     Route: 065
  4. MEPREDNISONE [Concomitant]
     Dosage: ON ONE DAY
     Route: 065
  5. MEPREDNISONE [Concomitant]
     Dosage: OTHER DAY
     Route: 065
  6. MEPREDNISONE [Concomitant]
     Dosage: QD
     Route: 048
     Dates: start: 2012
  7. MEPREDNISONE [Concomitant]
     Dosage: DAILY
     Route: 050

REACTIONS (2)
  - Immune thrombocytopenic purpura [Not Recovered/Not Resolved]
  - Gastrointestinal protozoal infection [Recovered/Resolved]
